FAERS Safety Report 11428157 (Version 1)
Quarter: 2015Q3

REPORT INFORMATION
  Report Type: Spontaneous
  Country: US (occurrence: US)
  Receive Date: 20150828
  Receipt Date: 20150828
  Transmission Date: 20151125
  Serious: Yes (Other)
  Sender: FDA-Public Use
  Company Number: US-ACCORD-033285

PATIENT
  Age: 20 Year
  Sex: Female

DRUGS (3)
  1. ACCORD^S AMITRIPTYLINE [Suspect]
     Active Substance: AMITRIPTYLINE
     Indication: MIGRAINE
     Dosage: ONCE AT NIGHT DAILY AT BEDTIME ABOUT 4 WEEKS AGO
     Route: 048
     Dates: end: 20150817
  2. IMIPRAMINE [Concomitant]
     Active Substance: IMIPRAMINE
  3. CLARITIN [Concomitant]
     Active Substance: LORATADINE

REACTIONS (7)
  - Wheezing [Recovered/Resolved]
  - Sneezing [Recovered/Resolved]
  - Off label use [Unknown]
  - Rash macular [Unknown]
  - Angioedema [Recovered/Resolved]
  - Urticaria [Recovered/Resolved]
  - Product substitution issue [Unknown]
